FAERS Safety Report 25604266 (Version 1)
Quarter: 2025Q3

REPORT INFORMATION
  Report Type: Spontaneous
  Country: US (occurrence: US)
  Receive Date: 20250725
  Receipt Date: 20250725
  Transmission Date: 20251021
  Serious: No
  Sender: EMD SERONO INC
  Company Number: US-Merck Healthcare KGaA-2025037489

PATIENT

DRUGS (1)
  1. GONAL-F [Suspect]
     Active Substance: FOLLITROPIN
     Indication: In vitro fertilisation

REACTIONS (8)
  - Anxiety [Unknown]
  - Stress [Unknown]
  - Fear of injection [Unknown]
  - Injection site bruising [Unknown]
  - Injection site discomfort [Unknown]
  - Needle issue [Unknown]
  - Device difficult to use [Unknown]
  - Product dose omission issue [Unknown]
